FAERS Safety Report 25606975 (Version 2)
Quarter: 2025Q4

REPORT INFORMATION
  Report Type: Spontaneous
  Country: US (occurrence: US)
  Receive Date: 20250725
  Receipt Date: 20251120
  Transmission Date: 20260117
  Serious: Yes (Other)
  Sender: SANOFI AVENTIS
  Company Number: US-SA-2025SA214691

PATIENT
  Age: 58 Year
  Sex: Male

DRUGS (1)
  1. DUPIXENT [Suspect]
     Active Substance: DUPILUMAB
     Indication: Asthma
     Dosage: 300 MG, QOW
     Route: 058

REACTIONS (6)
  - Cataract [Unknown]
  - Constipation [Unknown]
  - Rhinorrhoea [Unknown]
  - Loss of personal independence in daily activities [Unknown]
  - Headache [Unknown]
  - Injection site swelling [Recovered/Resolved]
